FAERS Safety Report 8773077 (Version 1)
Quarter: 2012Q4

REPORT INFORMATION
  Report Type: 
  Country: GB (occurrence: GB)
  Receive Date: 20120907
  Receipt Date: 20120907
  Transmission Date: 20130627
  Serious: Yes (Other)
  Sender: FDA-Public Use
  Company Number: PHHY2012GB075068

PATIENT
  Age: 54 Year
  Sex: Male
  Weight: 101 kg

DRUGS (5)
  1. CHLORPHENIRAMINE MALEATE [Suspect]
     Indication: SEASONAL ALLERGY
     Dates: start: 2006
  2. COPAXONE [Suspect]
     Indication: MULTIPLE SCLEROSIS
     Dosage: 1 DF, QD
     Route: 058
     Dates: start: 20120522
  3. COPAXONE [Suspect]
     Dosage: 1 DF, QD
     Dates: start: 20120715, end: 20120715
  4. COPAXONE [Suspect]
     Dosage: 1 DF, QD
     Dates: start: 20120614, end: 20120708
  5. TAMSULOSIN [Concomitant]
     Indication: DYSURIA
     Dosage: 400 ug, UNK
     Dates: start: 201106

REACTIONS (7)
  - Gait disturbance [Unknown]
  - Mobility decreased [Recovering/Resolving]
  - Multiple sclerosis relapse [Recovering/Resolving]
  - Urinary tract infection [Unknown]
  - Fall [Recovering/Resolving]
  - Drug intolerance [Unknown]
  - Coordination abnormal [Unknown]
